FAERS Safety Report 5375959-9 (Version None)
Quarter: 2007Q3

REPORT INFORMATION
  Report Type: 
  Country: None (occurrence: None)
  Receive Date: 20070702
  Receipt Date: 20070621
  Transmission Date: 20080115
  Serious: Yes (Hospitalization)
  Sender: FDA-Public Use
  Company Number: US-JNJFOC-20070605361

PATIENT
  Sex: Female
  Weight: 54.89 kg

DRUGS (3)
  1. FENTANYL TRANSDERMAL SYSTEM [Suspect]
     Indication: PAIN
     Dosage: 100UG/HR AND 25UG/HR PATCHES
     Route: 062
  2. PERCOCET [Concomitant]
     Indication: PAIN
     Dosage: EVERY 8 HOURS AS NEEDED
     Route: 048
  3. LYRICA [Concomitant]
     Indication: NEURALGIA
     Route: 048

REACTIONS (9)
  - AGITATION [None]
  - CHILLS [None]
  - DYSPEPSIA [None]
  - FATIGUE [None]
  - HYPERHIDROSIS [None]
  - INADEQUATE ANALGESIA [None]
  - INGROWN HAIR [None]
  - VAGINAL ABSCESS [None]
  - VAGINAL CELLULITIS [None]
